FAERS Safety Report 9335972 (Version 1)
Quarter: 2013Q2

REPORT INFORMATION
  Report Type: Spontaneous
  Country: US (occurrence: US)
  Receive Date: 20130606
  Receipt Date: 20130606
  Transmission Date: 20140414
  Serious: No
  Sender: FDA-Public Use
  Company Number: US-009507513-1305USA017473

PATIENT
  Age: 12 Year
  Sex: Female
  Weight: 40.82 kg

DRUGS (2)
  1. CLARITIN CHEWABLE TABLETS [Suspect]
     Indication: SEASONAL ALLERGY
     Dosage: 10 MG, PRN
     Route: 048
  2. CLARITIN CHEWABLE TABLETS [Suspect]
     Dosage: 10 MG, BID
     Route: 048
     Dates: start: 20130521

REACTIONS (1)
  - Overdose [Unknown]
